FAERS Safety Report 8783245 (Version 1)
Quarter: 2012Q4

REPORT INFORMATION
  Report Type: 
  Country: US (occurrence: US)
  Receive Date: 20120913
  Receipt Date: 20120913
  Transmission Date: 20130627
  Serious: No
  Sender: FDA-Public Use
  Company Number: US-B.I. PHARMACEUTICALS,INC./RIDGEFIELD-2012-BP-22174BP

PATIENT
  Age: 55 Year
  Sex: Female
  Weight: 63 kg

DRUGS (4)
  1. SPIRIVA [Suspect]
     Indication: ASTHMA
     Dosage: 18 mcg
     Route: 048
     Dates: start: 20120823
  2. SPIRIVA [Suspect]
     Route: 048
     Dates: start: 20120906, end: 20120906
  3. NAPROXEN [Concomitant]
     Indication: BACK PAIN
     Dosage: 1000 mg
     Route: 048
     Dates: start: 201208
  4. TIZANIDINE [Concomitant]
     Indication: HYPERTENSION
     Dosage: 8 mg
     Route: 048
     Dates: start: 201208

REACTIONS (1)
  - Incorrect route of drug administration [Recovered/Resolved]
